FAERS Safety Report 5977171-9 (Version None)
Quarter: 2008Q4

REPORT INFORMATION
  Report Type: 
  Country: None (occurrence: None)
  Receive Date: 20081203
  Receipt Date: 20081120
  Transmission Date: 20090506
  Serious: Yes (Hospitalization)
  Sender: FDA-Public Use
  Company Number: CH-ELI_LILLY_AND_COMPANY-CH200811004964

PATIENT
  Sex: Male

DRUGS (2)
  1. GEMZAR [Suspect]
     Indication: METASTASES TO LIVER
     Dosage: UNK, UNKNOWN (RECEIVED FIVE CYCLES)
     Route: 065
     Dates: start: 20070101
  2. GEMZAR [Suspect]
     Dosage: 1000 MG, WEEKLY (1/W)
     Route: 042
     Dates: start: 20080901

REACTIONS (1)
  - CAPILLARY LEAK SYNDROME [None]
